FAERS Safety Report 20300217 (Version 1)
Quarter: 2022Q1

REPORT INFORMATION
  Report Type: Report from Study
  Country: US (occurrence: US)
  Receive Date: 20220105
  Receipt Date: 20220105
  Transmission Date: 20220424
  Serious: No
  Sender: FDA-Public Use
  Company Number: US-KYOWAKIRIN-2021BKK021832

PATIENT

DRUGS (2)
  1. CRYSVITA [Suspect]
     Active Substance: BUROSUMAB-TWZA
     Indication: Hereditary hypophosphataemic rickets
     Dosage: 70 MG (COMBINED 10 MG AND 30 MG), ONCE EVERY 4 WEEKS
     Route: 058
     Dates: start: 20211124
  2. CRYSVITA [Suspect]
     Active Substance: BUROSUMAB-TWZA
     Indication: Hereditary hypophosphataemic rickets
     Dosage: 70 MG (COMBINED 10 MG AND 30 MG), ONCE EVERY 4 WEEKS
     Route: 058
     Dates: start: 20211124

REACTIONS (4)
  - Injection site extravasation [Unknown]
  - Injection site pain [Unknown]
  - Injection site bruising [Unknown]
  - Product administration error [Unknown]

NARRATIVE: CASE EVENT DATE: 20210101
